FAERS Safety Report 14682855 (Version 2)
Quarter: 2018Q2

REPORT INFORMATION
  Report Type: Spontaneous
  Country: US (occurrence: US)
  Receive Date: 20180327
  Receipt Date: 20180412
  Transmission Date: 20180711
  Serious: No
  Sender: FDA-Public Use
  Company Number: US-JNJFOC-20180307283

PATIENT
  Age: 10 Year
  Sex: Male
  Weight: 45.36 kg

DRUGS (1)
  1. CHILDRENS TYLENOL [Suspect]
     Active Substance: ACETAMINOPHEN
     Indication: HEADACHE
     Route: 048
     Dates: start: 20180222, end: 20180222

REACTIONS (4)
  - Hallucination [Recovered/Resolved]
  - Somnambulism [Recovered/Resolved]
  - Abnormal behaviour [Recovered/Resolved]
  - Sleep talking [Recovered/Resolved]

NARRATIVE: CASE EVENT DATE: 20180222
